FAERS Safety Report 9080087 (Version 3)
Quarter: 2013Q2

REPORT INFORMATION
  Report Type: Report from Study
  Country: US (occurrence: US)
  Receive Date: 20130130
  Receipt Date: 20130410
  Transmission Date: 20140414
  Serious: No
  Sender: FDA-Public Use
  Company Number: US-VERTEX PHARMACEUTICALS INC.-2013-001320

PATIENT
  Age: 61 Year
  Sex: Male

DRUGS (6)
  1. VX-950 (TELAPREVIR) [Suspect]
     Indication: HEPATITIS C
     Dosage: 750 MG, TID
     Route: 048
     Dates: start: 20130126
  2. RIBAPAK [Suspect]
     Indication: HEPATITIS C
     Dosage: 600 MG, BID
     Route: 048
     Dates: start: 20130126
  3. PEGASYS [Suspect]
     Indication: HEPATITIS C
     Dosage: 180 ?G, QW
     Route: 058
     Dates: start: 20130126
  4. DIOVAN [Concomitant]
     Dosage: 160 MG, QD
     Route: 048
  5. ALLOPURINOL [Concomitant]
     Dosage: 300 MG, QD
  6. LORTAB [Concomitant]
     Dosage: 5-500
     Route: 048

REACTIONS (2)
  - Rash generalised [Unknown]
  - Erythema [Unknown]
